FAERS Safety Report 20425328 (Version 1)
Quarter: 2022Q1

REPORT INFORMATION
  Report Type: Report from Study
  Country: US (occurrence: US)
  Receive Date: 20220204
  Receipt Date: 20220204
  Transmission Date: 20220423
  Serious: No
  Sender: FDA-Public Use
  Company Number: US-EXELIXIS-CABO-21037398

PATIENT
  Sex: Female

DRUGS (2)
  1. CABOMETYX [Suspect]
     Active Substance: CABOZANTINIB S-MALATE
     Indication: Hepatic cancer
     Dosage: 60 MG, QD
     Dates: start: 20210116, end: 20210216
  2. CABOMETYX [Suspect]
     Active Substance: CABOZANTINIB S-MALATE
     Dosage: 40 MG, QD
     Dates: start: 20210223

REACTIONS (6)
  - Chest pain [Recovered/Resolved]
  - Photopsia [Unknown]
  - Rash pruritic [Unknown]
  - Blood pressure increased [Not Recovered/Not Resolved]
  - Stomatitis [Unknown]
  - Malignant neoplasm progression [Unknown]
